FAERS Safety Report 9748081 (Version 2)
Quarter: 2014Q1

REPORT INFORMATION
  Report Type: Spontaneous
  Country: DE (occurrence: DE)
  Receive Date: 20131212
  Receipt Date: 20140214
  Transmission Date: 20141002
  Serious: Yes (Disabling)
  Sender: FDA-Public Use
  Company Number: DE-MERCK-1312DEU003728

PATIENT
  Age: 47 Year
  Sex: Male
  Weight: 90 kg

DRUGS (7)
  1. SIMVASTATIN [Suspect]
     Dosage: 80 MG, QD
     Route: 048
     Dates: start: 2007
  2. EZETROL 10 MG TABLETTEN [Suspect]
     Dosage: 10 MG, QD
     Route: 048
     Dates: start: 200909
  3. EZETROL 10 MG TABLETTEN [Suspect]
     Dosage: UNK
     Route: 048
     Dates: start: 2007, end: 2007
  4. ATORVASTATIN [Concomitant]
     Dosage: 40 MG, QD
     Route: 048
     Dates: start: 201205
  5. OMACOR [Concomitant]
     Dosage: 1 TAB, QD
     Route: 048
     Dates: start: 201207
  6. ASPIRIN [Concomitant]
     Dosage: 100 MG, QD
     Route: 048
     Dates: start: 2005
  7. THYROXIN [Concomitant]
     Indication: AUTOIMMUNE THYROIDITIS
     Dosage: UNK, PRN (DEPENDING ON METABOLIC STATUS)

REACTIONS (3)
  - Plantar fasciitis [Recovered/Resolved with Sequelae]
  - Tendon pain [Recovered/Resolved with Sequelae]
  - Tendonitis [Recovered/Resolved with Sequelae]
